FAERS Safety Report 4468334-2 (Version None)
Quarter: 2004Q4

REPORT INFORMATION
  Report Type: 
  Country: None (occurrence: None)
  Receive Date: 20041007
  Receipt Date: 20041004
  Transmission Date: 20050328
  Serious: Yes (Life-Threatening, Hospitalization)
  Sender: FDA-Public Use
  Company Number: US-MERCK-0410USA00468

PATIENT
  Age: 59 Year
  Sex: Male

DRUGS (3)
  1. GLUCOPHAGE [Concomitant]
     Route: 065
  2. ACCUPRIL [Concomitant]
     Route: 065
  3. VIOXX [Suspect]
     Indication: BACK PAIN
     Route: 048
     Dates: start: 20010101, end: 20020101

REACTIONS (2)
  - CARDIAC DISORDER [None]
  - QUADRUPLE VESSEL BYPASS GRAFT [None]
